FAERS Safety Report 12555920 (Version 1)
Quarter: 2016Q3

REPORT INFORMATION
  Report Type: Spontaneous
  Country: US (occurrence: None)
  Receive Date: 20160713
  Receipt Date: 20160713
  Transmission Date: 20161109
  Serious: Yes (Other)
  Sender: FDA-Public Use
  Company Number: None

PATIENT
  Age: 81 Year
  Sex: Male
  Weight: 63.5 kg

DRUGS (8)
  1. VITAMIN D3 [Concomitant]
     Active Substance: CHOLECALCIFEROL
  2. METAMUCIL [Concomitant]
     Active Substance: PLANTAGO SEED
  3. PRESERVISION AREDS 2 [Concomitant]
  4. COSOPT DROPS [Concomitant]
  5. VIAGRA [Concomitant]
     Active Substance: SILDENAFIL CITRATE
  6. AVASTIN [Suspect]
     Active Substance: BEVACIZUMAB
     Indication: NEOVASCULAR AGE-RELATED MACULAR DEGENERATION
     Dosage: 1.25MG/0.05ML SINGLE INJECTION ONCE INTRAVITREAL INJECTION
     Dates: start: 20160414, end: 20160414
  7. TRETINOIN. [Concomitant]
     Active Substance: TRETINOIN
  8. CALCIUM [Concomitant]
     Active Substance: CALCIUM

REACTIONS (3)
  - Uveitis [None]
  - Condition aggravated [None]
  - Vitreous floaters [None]

NARRATIVE: CASE EVENT DATE: 20160414
